FAERS Safety Report 9685388 (Version 2)
Quarter: 2014Q3

REPORT INFORMATION
  Report Type: Spontaneous
  Country: GB (occurrence: GB)
  Receive Date: 20131113
  Receipt Date: 20140821
  Transmission Date: 20150326
  Serious: Yes (Death, Other)
  Sender: FDA-Public Use
  Company Number: GB-TEVA-441878ISR

PATIENT
  Age: 65 Year
  Sex: Female
  Weight: 63.5 kg

DRUGS (4)
  1. FLUOXETINE [Suspect]
     Active Substance: FLUOXETINE\FLUOXETINE HYDROCHLORIDE
     Indication: INSOMNIA
  2. MIRTAZAPINE. [Suspect]
     Active Substance: MIRTAZAPINE
     Indication: INSOMNIA
     Dosage: AT NIGHT
     Route: 048
     Dates: start: 20130405, end: 20130423
  3. MIRTAZAPINE. [Suspect]
     Active Substance: MIRTAZAPINE
     Indication: DEPRESSION
     Dosage: AT NIGHT
     Route: 048
     Dates: start: 20130329
  4. FLUOXETINE [Suspect]
     Active Substance: FLUOXETINE\FLUOXETINE HYDROCHLORIDE
     Indication: DEPRESSION
     Route: 048
     Dates: start: 20120423, end: 20120503

REACTIONS (25)
  - Dissociation [Unknown]
  - Suicide attempt [Recovered/Resolved]
  - Dizziness [Unknown]
  - Emotional distress [Unknown]
  - Dry eye [Unknown]
  - Asthenopia [Unknown]
  - Depressed mood [Unknown]
  - Initial insomnia [Unknown]
  - Anxiety [Unknown]
  - Social avoidant behaviour [Unknown]
  - Panic reaction [Unknown]
  - Fear [Unknown]
  - Personality change [Not Recovered/Not Resolved]
  - Sedation [Unknown]
  - Agitation [Unknown]
  - Malaise [Unknown]
  - Dizziness [Unknown]
  - Feeling abnormal [Unknown]
  - Negative thoughts [Unknown]
  - Emotional distress [Unknown]
  - Completed suicide [Fatal]
  - Insomnia [Unknown]
  - Feeling of despair [Unknown]
  - Depression [Unknown]
  - Somatisation disorder [Unknown]

NARRATIVE: CASE EVENT DATE: 20130405
